FAERS Safety Report 4523202-2 (Version None)
Quarter: 2004Q4

REPORT INFORMATION
  Report Type: 
  Country: None (occurrence: None)
  Receive Date: 20041207
  Receipt Date: 20041207
  Transmission Date: 20050328
  Serious: Yes (Hospitalization)
  Sender: FDA-Public Use
  Company Number: None

PATIENT
  Age: 62 Year
  Sex: Male
  Weight: 89.8122 kg

DRUGS (1)
  1. VIOXX [Suspect]
     Indication: CARDIAC FAILURE CONGESTIVE
     Dosage: 1 X
     Dates: start: 20020701

REACTIONS (1)
  - CARDIAC FAILURE CONGESTIVE [None]
